FAERS Safety Report 14686623 (Version 2)
Quarter: 2018Q2

REPORT INFORMATION
  Report Type: Spontaneous
  Country: TR (occurrence: TR)
  Receive Date: 20180327
  Receipt Date: 20180403
  Transmission Date: 20180711
  Serious: Yes (Hospitalization)
  Sender: FDA-Public Use
  Company Number: TR-GILEAD-2018-0328087

PATIENT
  Age: 72 Year
  Sex: Female
  Weight: 78 kg

DRUGS (8)
  1. HARVONI [Suspect]
     Active Substance: LEDIPASVIR\SOFOSBUVIR
     Indication: HEPATITIS C
     Dosage: UNK
     Route: 065
     Dates: start: 201712, end: 201803
  2. CONCOR [Concomitant]
     Active Substance: BISOPROLOL FUMARATE
     Indication: HYPERTENSION
  3. FOSTER                             /00500401/ [Concomitant]
     Active Substance: PIROXICAM
     Indication: ASTHMA
  4. COMBIVENT [Concomitant]
     Active Substance: ALBUTEROL SULFATE\IPRATROPIUM BROMIDE
     Indication: ASTHMA
  5. FLIXOTIDE 50 INHALER [Concomitant]
     Indication: ASTHMA
  6. COUMADIN [Concomitant]
     Active Substance: WARFARIN SODIUM
  7. SYMBICORT [Concomitant]
     Active Substance: BUDESONIDE\FORMOTEROL FUMARATE DIHYDRATE
     Indication: ASTHMA
  8. PANTHEROL [Concomitant]
     Indication: ASTHMA

REACTIONS (3)
  - Dyspnoea [Recovered/Resolved]
  - Incorrect drug administration duration [Unknown]
  - Asthma [Unknown]

NARRATIVE: CASE EVENT DATE: 201803
